FAERS Safety Report 4965629-0 (Version None)
Quarter: 2006Q1

REPORT INFORMATION
  Report Type: 
  Country: None (occurrence: None)
  Receive Date: 20060201
  Receipt Date: 20051010
  Transmission Date: 20060701
  Serious: No
  Sender: FDA-Public Use
  Company Number: 2005PV003163

PATIENT
  Age: 60 Year
  Sex: Male
  Weight: 140.6151 kg

DRUGS (7)
  1. BYETTA [Suspect]
     Indication: DIABETES MELLITUS NON-INSULIN-DEPENDENT
     Dosage: 5 MCG; BID; SC; SEE IMAGE
     Route: 058
     Dates: start: 20050901, end: 20050901
  2. BYETTA [Suspect]
     Indication: DIABETES MELLITUS NON-INSULIN-DEPENDENT
     Dosage: 5 MCG; BID; SC; SEE IMAGE
     Route: 058
     Dates: start: 20050825
  3. ACTOS [Concomitant]
  4. GLUCOVANCE [Concomitant]
  5. HYZAAR [Concomitant]
  6. NORVASC [Concomitant]
  7. ASPIRIN [Concomitant]

REACTIONS (7)
  - BLOOD GLUCOSE DECREASED [None]
  - DECREASED APPETITE [None]
  - INSOMNIA [None]
  - NAUSEA [None]
  - NERVOUSNESS [None]
  - VISION BLURRED [None]
  - WEIGHT DECREASED [None]
